FAERS Safety Report 19392411 (Version 1)
Quarter: 2021Q2

REPORT INFORMATION
  Report Type: Spontaneous
  Country: IR (occurrence: IR)
  Receive Date: 20210609
  Receipt Date: 20210609
  Transmission Date: 20210717
  Serious: Yes (Other)
  Sender: FDA-Public Use
  Company Number: IR-LUPIN PHARMACEUTICALS INC.-2021-08947

PATIENT
  Age: 44 Year
  Sex: Male

DRUGS (15)
  1. MEROPENEM. [Suspect]
     Active Substance: MEROPENEM
     Indication: COVID-19 PNEUMONIA
     Dosage: 1000 MILLIGRAM, BID
     Route: 065
     Dates: start: 202003
  2. HYDROCORTISONE. [Concomitant]
     Active Substance: HYDROCORTISONE
     Indication: IMMUNOSUPPRESSANT DRUG THERAPY
     Dosage: 50 MILLIGRAM, TID
     Route: 065
  3. LOPINAVIR/RITONAVIR [Suspect]
     Active Substance: LOPINAVIR\RITONAVIR
     Indication: COVID-19 PNEUMONIA
     Dosage: 400 MG/100, BID
     Route: 065
     Dates: start: 202003, end: 202003
  4. METRONIDAZOLE. [Suspect]
     Active Substance: METRONIDAZOLE
     Indication: COVID-19 PNEUMONIA
     Dosage: 500 MILLIGRAM, TID
     Route: 065
     Dates: start: 202003
  5. SIROLIMUS. [Concomitant]
     Active Substance: SIROLIMUS
     Dosage: 1 MILLIGRAM, QD
     Route: 065
     Dates: start: 202003
  6. SIROLIMUS. [Concomitant]
     Active Substance: SIROLIMUS
     Dosage: 1 MILLIGRAM, BID
     Route: 065
     Dates: start: 202003
  7. PREDNISOLONE. [Concomitant]
     Active Substance: PREDNISOLONE
     Indication: IMMUNOSUPPRESSANT DRUG THERAPY
     Dosage: 5 MILLIGRAM, QD
     Route: 065
  8. PREDNISOLONE. [Concomitant]
     Active Substance: PREDNISOLONE
     Dosage: 5 MILLIGRAM, BID
     Route: 065
     Dates: start: 2020
  9. SIROLIMUS. [Concomitant]
     Active Substance: SIROLIMUS
     Indication: IMMUNOSUPPRESSANT DRUG THERAPY
     Dosage: 1 MILLIGRAM, BID
     Route: 065
  10. MYCOPHENOLATE SODIUM [Concomitant]
     Active Substance: MYCOPHENOLATE SODIUM
     Dosage: 360 MILLIGRAM, BID
     Route: 065
     Dates: start: 2020
  11. HYDROXYCHLOROQUINE [Suspect]
     Active Substance: HYDROXYCHLOROQUINE
     Indication: COVID-19 PNEUMONIA
     Dosage: 400 MILLIGRAM, 400 MG STAT
     Route: 065
     Dates: start: 202003
  12. OSELTAMIVIR [Suspect]
     Active Substance: OSELTAMIVIR
     Indication: COVID-19 PNEUMONIA
     Dosage: 75 MILLIGRAM, BID
     Route: 065
     Dates: start: 202003
  13. MYCOPHENOLATE SODIUM [Concomitant]
     Active Substance: MYCOPHENOLATE SODIUM
     Indication: IMMUNOSUPPRESSANT DRUG THERAPY
     Dosage: 720 MILLIGRAM, BID
     Route: 065
     Dates: end: 202003
  14. LEVOFLOXACIN. [Suspect]
     Active Substance: LEVOFLOXACIN
     Indication: COVID-19 PNEUMONIA
     Dosage: 500 MILLIGRAM, QD
     Route: 065
     Dates: start: 202003
  15. TACROLIMUS. [Concomitant]
     Active Substance: TACROLIMUS
     Indication: IMMUNOSUPPRESSANT DRUG THERAPY
     Dosage: 1 MILLIGRAM, BID
     Route: 065
     Dates: start: 202003

REACTIONS (1)
  - Off label use [Unknown]

NARRATIVE: CASE EVENT DATE: 202003
